FAERS Safety Report 25554237 (Version 4)
Quarter: 2025Q4

REPORT INFORMATION
  Report Type: Spontaneous
  Country: JP (occurrence: JP)
  Receive Date: 20250715
  Receipt Date: 20251028
  Transmission Date: 20260118
  Serious: Yes (Hospitalization, Other)
  Sender: PFIZER
  Company Number: JP-ONO-2025JP011848

PATIENT
  Age: 76 Year
  Sex: Male

DRUGS (8)
  1. BRAFTOVI [Suspect]
     Active Substance: ENCORAFENIB
     Indication: Malignant melanoma
     Dosage: 450 MG
     Route: 048
     Dates: start: 20250616, end: 20250617
  2. BRAFTOVI [Suspect]
     Active Substance: ENCORAFENIB
     Dosage: 450 MG
     Route: 048
     Dates: start: 20250627, end: 20250702
  3. BRAFTOVI [Suspect]
     Active Substance: ENCORAFENIB
     Dosage: 300 MG
     Route: 048
     Dates: start: 20250703, end: 202509
  4. BRAFTOVI [Suspect]
     Active Substance: ENCORAFENIB
     Dosage: 300 MG
     Route: 048
     Dates: start: 202510, end: 202510
  5. MEKTOVI [Suspect]
     Active Substance: BINIMETINIB
     Indication: Malignant melanoma
     Dosage: 45 MG
     Route: 048
     Dates: start: 20250616, end: 20250617
  6. MEKTOVI [Suspect]
     Active Substance: BINIMETINIB
     Dosage: 45 MG
     Route: 048
     Dates: start: 20250627, end: 20250702
  7. MEKTOVI [Suspect]
     Active Substance: BINIMETINIB
     Dosage: 30 MG
     Route: 048
     Dates: start: 20250703, end: 202509
  8. MEKTOVI [Suspect]
     Active Substance: BINIMETINIB
     Dosage: 30 MG
     Route: 048
     Dates: start: 202510, end: 202510

REACTIONS (3)
  - Abdominal distension [Not Recovered/Not Resolved]
  - Renal impairment [Recovered/Resolved]
  - Hepatic function abnormal [Not Recovered/Not Resolved]

NARRATIVE: CASE EVENT DATE: 20250618
